FAERS Safety Report 5053249-1 (Version None)
Quarter: 2006Q3

REPORT INFORMATION
  Report Type: 
  Country: None (occurrence: None)
  Receive Date: 20060712
  Receipt Date: 20060622
  Transmission Date: 20061208
  Serious: No
  Sender: FDA-Public Use
  Company Number: US200606000736

PATIENT
  Age: 50 Year

DRUGS (2)
  1. FORTEO [Suspect]
     Dates: start: 20060501
  2. FORTEO [Concomitant]

REACTIONS (1)
  - NO ADVERSE DRUG EFFECT [None]
